FAERS Safety Report 21022621 (Version 6)
Quarter: 2024Q4

REPORT INFORMATION
  Report Type: Spontaneous
  Country: CA (occurrence: CA)
  Receive Date: 20220629
  Receipt Date: 20241216
  Transmission Date: 20250114
  Serious: Yes (Hospitalization)
  Sender: ROCHE
  Company Number: CA-ROCHE-3126252

PATIENT
  Age: 66 Year
  Sex: Female
  Weight: 105.0 kg

DRUGS (15)
  1. ELTROMBOPAG OLAMINE [Suspect]
     Active Substance: ELTROMBOPAG OLAMINE
     Indication: Immune thrombocytopenia
     Route: 048
  2. ELTROMBOPAG OLAMINE [Suspect]
     Active Substance: ELTROMBOPAG OLAMINE
     Route: 048
  3. ELTROMBOPAG OLAMINE [Suspect]
     Active Substance: ELTROMBOPAG OLAMINE
     Route: 048
  4. ELTROMBOPAG OLAMINE [Suspect]
     Active Substance: ELTROMBOPAG OLAMINE
     Route: 048
  5. ELTROMBOPAG OLAMINE [Suspect]
     Active Substance: ELTROMBOPAG OLAMINE
     Route: 048
  6. ELTROMBOPAG OLAMINE [Suspect]
     Active Substance: ELTROMBOPAG OLAMINE
     Route: 048
  7. ELTROMBOPAG OLAMINE [Suspect]
     Active Substance: ELTROMBOPAG OLAMINE
     Dosage: THERAPY DURATION 335 DAYS
     Route: 048
  8. ELTROMBOPAG OLAMINE [Suspect]
     Active Substance: ELTROMBOPAG OLAMINE
     Dosage: THERAPY DURATION 382 DAYS
     Route: 048
  9. ELTROMBOPAG OLAMINE [Suspect]
     Active Substance: ELTROMBOPAG OLAMINE
     Route: 048
  10. ELTROMBOPAG OLAMINE [Suspect]
     Active Substance: ELTROMBOPAG OLAMINE
     Route: 048
  11. ELTROMBOPAG OLAMINE [Suspect]
     Active Substance: ELTROMBOPAG OLAMINE
     Route: 048
  12. DEXAMETHASONE [Suspect]
     Active Substance: DEXAMETHASONE
     Indication: Immune thrombocytopenia
     Route: 065
  13. PREDNISONE [Suspect]
     Active Substance: PREDNISONE
     Indication: Immune thrombocytopenia
     Route: 065
  14. METHOTREXATE [Suspect]
     Active Substance: METHOTREXATE
     Indication: Rheumatoid arthritis
     Route: 065
  15. RITUXIMAB [Interacting]
     Active Substance: RITUXIMAB
     Indication: Immune thrombocytopenia
     Route: 065

REACTIONS (21)
  - Platelet count increased [Recovering/Resolving]
  - Product prescribing error [Unknown]
  - Fatigue [Recovering/Resolving]
  - Off label use [Unknown]
  - Drug ineffective [Unknown]
  - Drug interaction [Recovering/Resolving]
  - COVID-19 [Recovering/Resolving]
  - Platelet count decreased [Recovering/Resolving]
  - Wrong technique in product usage process [Unknown]
  - SARS-CoV-2 test positive [Recovering/Resolving]
  - Mouth haemorrhage [Recovering/Resolving]
  - Influenza [Recovering/Resolving]
  - Arthralgia [Recovering/Resolving]
  - Haemorrhage [Recovering/Resolving]
  - Head injury [Recovering/Resolving]
  - Joint injury [Recovering/Resolving]
  - Limb injury [Recovering/Resolving]
  - Localised infection [Recovering/Resolving]
  - Swelling face [Recovering/Resolving]
  - Skin haemorrhage [Recovering/Resolving]
  - Therapeutic response decreased [Unknown]
